FAERS Safety Report 17084561 (Version 1)
Quarter: 2019Q4

REPORT INFORMATION
  Report Type: Other
  Country: GB (occurrence: GB)
  Receive Date: 20191127
  Receipt Date: 20191127
  Transmission Date: 20200122
  Serious: Yes (Hospitalization)
  Sender: FDA-Public Use
  Company Number: GB-CELLTRION INC.-2019GB026670

PATIENT

DRUGS (8)
  1. RANITIDINE HYDROCHLORIDE. [Concomitant]
     Active Substance: RANITIDINE HYDROCHLORIDE
     Dosage: UNK
  2. TRUXIMA [Suspect]
     Active Substance: RITUXIMAB-ABBS
     Indication: MARGINAL ZONE LYMPHOMA
     Dosage: 600 MG
     Route: 042
     Dates: start: 20180510, end: 20180510
  3. TRUXIMA [Suspect]
     Active Substance: RITUXIMAB-ABBS
     Dosage: 600 MG
     Route: 042
     Dates: start: 20180510, end: 20180510
  4. HYPROMELLOSE [Concomitant]
     Active Substance: HYPROMELLOSES
  5. CITALOPRAM [Concomitant]
     Active Substance: CITALOPRAM HYDROBROMIDE
  6. VITAMIN D [Concomitant]
     Active Substance: VITAMIN D NOS
  7. LORATADINE. [Concomitant]
     Active Substance: LORATADINE
  8. FERROUS FUMARATE [Concomitant]
     Active Substance: FERROUS FUMARATE

REACTIONS (3)
  - Thrombocytopenia [Recovering/Resolving]
  - Epistaxis [Unknown]
  - Product use in unapproved indication [Unknown]

NARRATIVE: CASE EVENT DATE: 20180510
